FAERS Safety Report 11877823 (Version 1)
Quarter: 2015Q4

REPORT INFORMATION
  Report Type: Spontaneous
  Country: FR (occurrence: FR)
  Receive Date: 20151230
  Receipt Date: 20151230
  Transmission Date: 20160305
  Serious: Yes (Other)
  Sender: FDA-Public Use
  Company Number: FR-ROCHE-1685937

PATIENT
  Age: 69 Year
  Sex: Male

DRUGS (16)
  1. ZELBORAF [Suspect]
     Active Substance: VEMURAFENIB
     Indication: METASTATIC MALIGNANT MELANOMA
     Dosage: 4 TABLETS
     Route: 048
     Dates: start: 20141204, end: 20150403
  2. KARDEGIC [Concomitant]
     Active Substance: ASPIRIN LYSINE
  3. SERETIDE [Concomitant]
     Active Substance: FLUTICASONE FUROATE\SALMETEROL XINAFOATE
  4. KEPPRA [Concomitant]
     Active Substance: LEVETIRACETAM
  5. DIAMICRON [Concomitant]
     Active Substance: GLICLAZIDE
  6. LASILIX [Concomitant]
     Active Substance: FUROSEMIDE
  7. ZYLORIC [Concomitant]
     Active Substance: ALLOPURINOL
  8. TAHOR [Concomitant]
     Active Substance: ATORVASTATIN CALCIUM
  9. PLAVIX [Concomitant]
     Active Substance: CLOPIDOGREL BISULFATE
  10. HYPERIUM [Concomitant]
     Active Substance: RILMENIDINE PHOSPHATE
  11. IMOVANE [Concomitant]
     Active Substance: ZOPICLONE
  12. XANAX [Concomitant]
     Active Substance: ALPRAZOLAM
  13. LERCAN [Concomitant]
     Active Substance: LERCANIDIPINE
  14. EUPRESSYL [Concomitant]
     Active Substance: URAPIDIL
  15. DAFALGAN [Concomitant]
     Active Substance: ACETAMINOPHEN
  16. BISOCE [Concomitant]
     Active Substance: BISOPROLOL

REACTIONS (4)
  - Renal failure [Recovering/Resolving]
  - Gastrointestinal disorder [Recovered/Resolved]
  - Asthenia [Recovered/Resolved]
  - Myalgia [Recovered/Resolved]

NARRATIVE: CASE EVENT DATE: 20141206
